FAERS Safety Report 24797827 (Version 2)
Quarter: 2025Q1

REPORT INFORMATION
  Report Type: Spontaneous
  Country: CA (occurrence: CA)
  Receive Date: 20250102
  Receipt Date: 20250208
  Transmission Date: 20250409
  Serious: No
  Sender: JOHNSON AND JOHNSON
  Company Number: CA-JNJFOC-20241289894

PATIENT
  Sex: Female

DRUGS (1)
  1. SIMPONI [Suspect]
     Active Substance: GOLIMUMAB
     Indication: Product used for unknown indication
     Route: 058

REACTIONS (3)
  - Adverse drug reaction [Unknown]
  - Hypoaesthesia [Not Recovered/Not Resolved]
  - Pain [Not Recovered/Not Resolved]
